FAERS Safety Report 9653423 (Version 1)
Quarter: 2013Q4

REPORT INFORMATION
  Report Type: Spontaneous
  Country: VE (occurrence: VE)
  Receive Date: 20131029
  Receipt Date: 20131029
  Transmission Date: 20140711
  Serious: Yes (Life-Threatening, Hospitalization)
  Sender: FDA-Public Use
  Company Number: VE-UCBSA-101590

PATIENT
  Age: 45 Year
  Sex: Male

DRUGS (3)
  1. KEPPRA [Suspect]
     Indication: POST-TRAUMATIC EPILEPSY
     Dosage: NASOGASTRIC TUBE
     Dates: start: 20131009, end: 20131012
  2. FENITOIN [Suspect]
     Indication: POST-TRAUMATIC EPILEPSY
     Route: 042
  3. VALPROIC ACID [Suspect]
     Indication: POST-TRAUMATIC EPILEPSY
     Route: 042

REACTIONS (2)
  - Stevens-Johnson syndrome [Unknown]
  - Rash generalised [Unknown]
